FAERS Safety Report 11444552 (Version 2)
Quarter: 2015Q3

REPORT INFORMATION
  Report Type: Spontaneous
  Country: US (occurrence: US)
  Receive Date: 20150902
  Receipt Date: 20150915
  Transmission Date: 20151125
  Serious: No
  Sender: FDA-Public Use
  Company Number: US-AMGEN-USASP2015089778

PATIENT
  Age: 55 Year
  Sex: Female

DRUGS (1)
  1. ENBREL [Suspect]
     Active Substance: ETANERCEPT
     Indication: ANKYLOSING SPONDYLITIS
     Dosage: 0.98 ML, QWK
     Route: 058
     Dates: start: 20141011, end: 20150831

REACTIONS (2)
  - Neuropathy peripheral [Unknown]
  - Discomfort [Unknown]

NARRATIVE: CASE EVENT DATE: 20150831
